FAERS Safety Report 9271422 (Version 2)
Quarter: 2013Q3

REPORT INFORMATION
  Report Type: Spontaneous
  Country: DE (occurrence: DE)
  Receive Date: 20130506
  Receipt Date: 20130805
  Transmission Date: 20140515
  Serious: Yes (Hospitalization, Other)
  Sender: FDA-Public Use
  Company Number: DE-JNJFOC-20130417067

PATIENT
  Age: 77 Year
  Sex: Male
  Weight: 63.04 kg

DRUGS (3)
  1. XARELTO [Suspect]
     Indication: CEREBROVASCULAR ACCIDENT PROPHYLAXIS
     Route: 048
  2. XARELTO [Suspect]
     Indication: ATRIAL FIBRILLATION
     Route: 048
  3. VERAPAMIL [Concomitant]
     Route: 065

REACTIONS (3)
  - Lung disorder [Unknown]
  - Haemoptysis [Unknown]
  - Upper gastrointestinal haemorrhage [Recovering/Resolving]
